FAERS Safety Report 8305035-4 (Version None)
Quarter: 2012Q2

REPORT INFORMATION
  Report Type: 
  Country: None (occurrence: None)
  Receive Date: 20120402
  Receipt Date: 20120321
  Transmission Date: 20120825
  Serious: Yes (Hospitalization, Other)
  Sender: FDA-Public Use
  Company Number: 2011029992

PATIENT
  Age: 50 Year
  Sex: Female
  Weight: 78.4723 kg

DRUGS (37)
  1. HIZENTRA [Suspect]
     Indication: HYPOGAMMAGLOBULINAEMIA
     Dosage: (4 GM 20 ML VIAL SUBCUTANEOUS)
     Route: 058
     Dates: start: 20110916, end: 20110916
  2. HIZENTRA [Suspect]
     Indication: HYPOGAMMAGLOBULINAEMIA
     Dosage: (2 GM 10 ML VIAL SUBCUTANEOUS)
     Route: 058
     Dates: start: 20110916
  3. HIZENTRA [Suspect]
     Indication: HYPOGAMMAGLOBULINAEMIA
     Dosage: (4 GM 20 ML VIAL SUBCUTANEOUS)
     Route: 058
     Dates: start: 20110916
  4. PREDNISONE TAB [Suspect]
  5. IBUPROFEN [Concomitant]
  6. HIZENTRA [Suspect]
     Indication: HYPOGAMMAGLOBULINAEMIA
     Dosage: (1 GM 5 ML VIAL SUBCUTANEOUS
     Route: 058
     Dates: start: 20111007, end: 20111007
  7. HIZENTRA [Suspect]
     Indication: HYPOGAMMAGLOBULINAEMIA
     Dosage: (SUBCUTANEOUS)
     Route: 058
     Dates: start: 20110923, end: 20110923
  8. HIZENTRA [Suspect]
     Dosage: (SUBCUTANEOUS)
     Route: 058
     Dates: start: 20110930, end: 20110930
  9. HIZENTRA [Suspect]
     Indication: HYPOGAMMAGLOBULINAEMIA
     Dosage: (1 GM 5 ML VIAL SUBCUTANEOUS)
     Route: 058
     Dates: start: 20110916
  10. HIZENTRA [Suspect]
     Indication: HYPOGAMMAGLOBULINAEMIA
     Dosage: (2 GM 10 ML VIAL SUBCUTANEOUS)
     Route: 058
     Dates: start: 20110916
  11. FEXOFENADINE PSE (FEXOFENADINE) [Concomitant]
  12. FORMOTEROL FUMARATE [Concomitant]
  13. MULTIVITAMIN (ACCOMIN MULTIVITAMIN) [Concomitant]
  14. AMOXICILLIN [Concomitant]
  15. HIZENTRA [Suspect]
     Indication: HYPOGAMMAGLOBULINAEMIA
     Dosage: (4 GM 20 ML VIAL SUBCUTANEOUS)
     Route: 058
     Dates: start: 20111007, end: 20111007
  16. HIZENTRA [Suspect]
     Indication: HYPOGAMMAGLOBULINAEMIA
     Dosage: (SUBCUTANEOUS)
     Route: 058
     Dates: start: 20110923, end: 20110923
  17. HIZENTRA [Suspect]
     Indication: HYPOGAMMAGLOBULINAEMIA
     Dosage: (SUBCUTANEOUS)
     Route: 058
     Dates: start: 20110923, end: 20110923
  18. HIZENTRA [Suspect]
     Dosage: (1 GM 5 ML VIAL SUBCUTANEOUS)
     Route: 058
     Dates: start: 20110916
  19. HIZENTRA [Suspect]
     Indication: HYPOGAMMAGLOBULINAEMIA
     Dates: start: 20120317
  20. ALBUTEROL [Concomitant]
  21. PROAIR HFA (PROCATEROL HYDROCHLORIDE) [Concomitant]
  22. OMEPRAZOLE [Concomitant]
  23. HIZENTRA [Suspect]
     Indication: HYPOGAMMAGLOBULINAEMIA
     Dosage: (2 GM 10 ML VIAL SUBCUTANEOUS)
     Route: 058
     Dates: start: 20110916, end: 20110916
  24. HIZENTRA [Suspect]
     Indication: HYPOGAMMAGLOBULINAEMIA
     Dosage: (SUBCUTANEOUS)
     Route: 058
     Dates: start: 20110930, end: 20110930
  25. HIZENTRA [Suspect]
     Indication: HYPOGAMMAGLOBULINAEMIA
     Dosage: (SUBCUTANEOUS)
     Route: 058
     Dates: start: 20110930, end: 20110930
  26. HIZENTRA [Suspect]
     Indication: HYPOGAMMAGLOBULINAEMIA
     Dosage: (5 GM 20 ML VIAL SUBCUTANEOUS)
     Route: 058
     Dates: start: 20110916
  27. HIZENTRA [Suspect]
     Indication: HYPOGAMMAGLOBULINAEMIA
     Dates: start: 20120319
  28. HIZENTRA [Suspect]
     Indication: HYPOGAMMAGLOBULINAEMIA
     Dates: start: 20120317
  29. HIZENTRA [Suspect]
     Indication: HYPOGAMMAGLOBULINAEMIA
     Dates: start: 20120317
  30. PREMARIN [Concomitant]
  31. CLONAZEPAM [Concomitant]
  32. ZOFRAN [Concomitant]
  33. HIZENTRA [Suspect]
     Indication: HYPOGAMMAGLOBULINAEMIA
     Dates: start: 20120319
  34. DOXYCYCLINE HYCLATE [Concomitant]
  35. HIZENTRA [Suspect]
     Indication: HYPOGAMMAGLOBULINAEMIA
     Dosage: (15 G 1X/WEEK, 1 GM 5 ML VIAL; 75 ML WEEKLY IN 3-5 SITES OVER 1-2 HOURS, SUBCUTANEOUS
     Route: 058
     Dates: start: 20110916, end: 20110916
  36. HIZENTRA [Suspect]
     Indication: HYPOGAMMAGLOBULINAEMIA
     Dosage: (2 GM 10 ML VIAL SUBCUTANEOUS)
     Route: 058
     Dates: start: 20111007, end: 20111007
  37. HIZENTRA [Suspect]
     Dates: start: 20120319

REACTIONS (15)
  - SUPERFICIAL VEIN PROMINENCE [None]
  - INFUSION SITE WARMTH [None]
  - VOMITING [None]
  - INFUSION SITE URTICARIA [None]
  - NAUSEA [None]
  - DIARRHOEA [None]
  - FATIGUE [None]
  - INFUSION SITE EXTRAVASATION [None]
  - INFUSION SITE ERYTHEMA [None]
  - MENINGITIS VIRAL [None]
  - CONTUSION [None]
  - INFUSION SITE PAIN [None]
  - HEADACHE [None]
  - SINUSITIS [None]
  - INFUSION SITE SWELLING [None]
